FAERS Safety Report 16535290 (Version 1)
Quarter: 2019Q3

REPORT INFORMATION
  Report Type: Report from Study
  Country: JP (occurrence: JP)
  Receive Date: 20190705
  Receipt Date: 20190705
  Transmission Date: 20191004
  Serious: No
  Sender: FDA-Public Use
  Company Number: JP-BEH-2019103843

PATIENT
  Age: 84 Year
  Sex: Female
  Weight: 38.1 kg

DRUGS (9)
  1. BERIPLEX P/N [Suspect]
     Active Substance: COAGULATION FACTOR IX HUMAN\COAGULATION FACTOR VII HUMAN\COAGULATION FACTOR X HUMAN\PROTEIN C\PROTEIN S HUMAN\PROTHROMBIN
     Indication: HAEMORRHAGE
     Dosage: 1000 INTERNATIONAL UNIT
     Route: 042
     Dates: start: 20180406
  2. KAYTWO [Concomitant]
     Active Substance: MENATETRENONE
     Indication: ANTICOAGULANT THERAPY
     Dosage: 20 MILLIGRAM, SINGLE
     Route: 065
     Dates: start: 20180406, end: 20180406
  3. WARFARIN POTASSIUM [Concomitant]
     Active Substance: WARFARIN POTASSIUM
     Indication: ANTICOAGULANT THERAPY
  4. HEPARIN [Concomitant]
     Active Substance: HEPARIN SODIUM
     Indication: ATRIAL FIBRILLATION
     Dosage: 5000 INTERNATIONAL UNIT
     Route: 065
     Dates: start: 20180409, end: 20180412
  5. WARFARIN POTASSIUM [Concomitant]
     Active Substance: WARFARIN POTASSIUM
     Indication: ATRIAL FIBRILLATION
     Dosage: 2 MILLIGRAM
     Route: 048
     Dates: start: 20180409
  6. WARFARIN POTASSIUM [Concomitant]
     Active Substance: WARFARIN POTASSIUM
     Indication: PROPHYLAXIS
     Dosage: 2 MILLIGRAM
     Route: 048
  7. BERIPLEX P/N [Suspect]
     Active Substance: COAGULATION FACTOR IX HUMAN\COAGULATION FACTOR VII HUMAN\COAGULATION FACTOR X HUMAN\PROTEIN C\PROTEIN S HUMAN\PROTHROMBIN
     Indication: HAEMORRHAGE
     Dosage: 1000 INTERNATIONAL UNIT
     Route: 042
     Dates: start: 20180406
  8. KAYTWO [Concomitant]
     Active Substance: MENATETRENONE
     Indication: VITAMIN K
  9. HEPARIN [Concomitant]
     Active Substance: HEPARIN SODIUM
     Indication: PROPHYLAXIS

REACTIONS (1)
  - Urinary tract infection [Recovered/Resolved]

NARRATIVE: CASE EVENT DATE: 20180414
